FAERS Safety Report 7015138-2 (Version None)
Quarter: 2010Q3

REPORT INFORMATION
  Report Type: 
  Country: None (occurrence: None)
  Receive Date: 20100927
  Receipt Date: 20100709
  Transmission Date: 20110219
  Serious: No
  Sender: FDA-Public Use
  Company Number: US-ASTRAZENECA-2010SE32232

PATIENT
  Sex: Male

DRUGS (1)
  1. ARIMIDEX [Suspect]
     Indication: PEUTZ-JEGHERS SYNDROME
     Route: 048

REACTIONS (1)
  - TESTICULAR MICROLITHIASIS [None]
